FAERS Safety Report 14037501 (Version 1)
Quarter: 2017Q4

REPORT INFORMATION
  Report Type: Spontaneous
  Country: US (occurrence: US)
  Receive Date: 20171004
  Receipt Date: 20171004
  Transmission Date: 20180321
  Serious: Yes (Hospitalization, Other)
  Sender: FDA-Public Use
  Company Number: US-VISTAPHARM, INC.-VER201709-000760

PATIENT
  Age: 78 Year
  Sex: Female

DRUGS (2)
  1. ALBUTEROL. [Suspect]
     Active Substance: ALBUTEROL
     Indication: DYSPNOEA
     Dosage: SEVERAL TIMES AND AT LEAST 4 TIME IN 12 HOURS
  2. ALBUTEROL. [Suspect]
     Active Substance: ALBUTEROL
     Dosage: 2 TIMES A DAY (AS NEEDED ONLY)

REACTIONS (2)
  - Stress cardiomyopathy [Recovered/Resolved]
  - Overdose [Unknown]
